FAERS Safety Report 11168217 (Version 1)
Quarter: 2015Q2

REPORT INFORMATION
  Report Type: Spontaneous
  Country: US (occurrence: None)
  Receive Date: 20150604
  Receipt Date: 20150604
  Transmission Date: 20150821
  Serious: Yes (Death)
  Sender: FDA-Public Use
  Company Number: None

PATIENT
  Age: 20 Year
  Sex: Male
  Weight: 58.97 kg

DRUGS (1)
  1. DIPHENHYDRAMINE 50 MG/ML [Suspect]
     Active Substance: DIPHENHYDRAMINE
     Indication: SLEEP DISORDER

REACTIONS (1)
  - Malaise [None]

NARRATIVE: CASE EVENT DATE: 20141104
